FAERS Safety Report 6431166-X (Version None)
Quarter: 2009Q4

REPORT INFORMATION
  Report Type: 
  Country: None (occurrence: None)
  Receive Date: 20091105
  Receipt Date: 20091105
  Transmission Date: 20100525
  Serious: Yes (Death)
  Sender: FDA-Public Use
  Company Number: None

PATIENT
  Age: 71 Year
  Sex: Female

DRUGS (2)
  1. COUMADIN [Suspect]
     Indication: PULMONARY EMBOLISM
     Dosage: 7.5 PO
     Route: 048
     Dates: start: 20090628, end: 20090629
  2. LOVENOX [Suspect]
     Indication: PULMONARY EMBOLISM
     Dosage: 40 MG BID SQ
     Route: 058
     Dates: start: 20090625, end: 20090629

REACTIONS (3)
  - CARDIO-RESPIRATORY ARREST [None]
  - COAGULOPATHY [None]
  - PULMONARY EMBOLISM [None]
